FAERS Safety Report 9812353 (Version 4)
Quarter: 2014Q3

REPORT INFORMATION
  Report Type: Report from Study
  Country: US (occurrence: US)
  Receive Date: 20140113
  Receipt Date: 20140701
  Transmission Date: 20150326
  Serious: Yes (Death, Hospitalization)
  Sender: FDA-Public Use
  Company Number: US-ROCHE-1331657

PATIENT
  Age: 42 Year
  Sex: Male
  Weight: 96.7 kg

DRUGS (8)
  1. LANSOPRAZOLE. [Concomitant]
     Active Substance: LANSOPRAZOLE
     Route: 065
  2. ONDANSETRON [Concomitant]
     Active Substance: ONDANSETRON
     Dosage: AS NEEDED
     Route: 065
  3. DEXAMETHASONE. [Concomitant]
     Active Substance: DEXAMETHASONE
     Route: 065
  4. BEVACIZUMAB [Suspect]
     Active Substance: BEVACIZUMAB
     Indication: GLIOBLASTOMA
     Route: 042
     Dates: start: 20131211
  5. SODIUM CHLORIDE TABLETS [Concomitant]
  6. NYSTATIN. [Concomitant]
     Active Substance: NYSTATIN
     Dosage: UNITS/ML
     Route: 065
  7. VORINOSTAT [Suspect]
     Active Substance: VORINOSTAT
     Indication: GLIOBLASTOMA
     Dosage: 7 DAYS ON 7 DAYS OFF
     Route: 048
     Dates: start: 20131211
  8. COMPAZINE [Concomitant]
     Active Substance: PROCHLORPERAZINE MALEATE
     Dosage: AS NEEDED
     Route: 065

REACTIONS (3)
  - Muscular weakness [Unknown]
  - Confusional state [Unknown]
  - Death [Fatal]

NARRATIVE: CASE EVENT DATE: 20140102
